FAERS Safety Report 16088365 (Version 1)
Quarter: 2019Q2

REPORT INFORMATION
  Report Type: Spontaneous
  Country: US (occurrence: US)
  Receive Date: 20190319
  Receipt Date: 20190319
  Transmission Date: 20190711
  Serious: Yes (Other)
  Sender: FDA-Public Use
  Company Number: None

PATIENT
  Age: 44 Year
  Sex: Male
  Weight: 84.15 kg

DRUGS (1)
  1. CHLORTHALIDONE. [Suspect]
     Active Substance: CHLORTHALIDONE
     Indication: HYPERTENSION
     Route: 048

REACTIONS (6)
  - Blood potassium decreased [None]
  - Thirst [None]
  - Muscle twitching [None]
  - Blood pH increased [None]
  - Contusion [None]
  - Pollakiuria [None]

NARRATIVE: CASE EVENT DATE: 20190210
